FAERS Safety Report 21829223 (Version 1)
Quarter: 2023Q1

REPORT INFORMATION
  Report Type: Report from Study
  Country: JP (occurrence: JP)
  Receive Date: 20230106
  Receipt Date: 20230106
  Transmission Date: 20230417
  Serious: Yes (Other)
  Sender: FDA-Public Use
  Company Number: JP-BAYER-2022A176343

PATIENT
  Sex: Female

DRUGS (1)
  1. EYLEA [Suspect]
     Active Substance: AFLIBERCEPT
     Indication: Diabetic retinopathy
     Dosage: SOLUTION FOR INJECTION
     Route: 031

REACTIONS (10)
  - Stillbirth [Unknown]
  - Cardiac failure [Unknown]
  - Off label use [Unknown]
  - Contraindicated product administered [Unknown]
  - Maternal exposure during pregnancy [Unknown]
  - Abnormal weight gain [Unknown]
  - Abnormal loss of weight [Unknown]
  - Malaise [Unknown]
  - Renal disorder [Unknown]
  - Respiratory disorder [Unknown]
